FAERS Safety Report 22046824 (Version 10)
Quarter: 2024Q4

REPORT INFORMATION
  Report Type: Report from Study
  Country: ZA (occurrence: ZA)
  Receive Date: 20230228
  Receipt Date: 20241115
  Transmission Date: 20250115
  Serious: Yes (Hospitalization, Other)
  Sender: CELLTRION
  Company Number: ZA-CELLTRION INC.-2022ZA020744

PATIENT

DRUGS (7)
  1. INFLIXIMAB-DYYB [Suspect]
     Active Substance: INFLIXIMAB-DYYB
     Indication: Ankylosing spondylitis
     Dosage: 400MG AT 0 WEEKS, THEN 2 WEEKS
     Route: 042
     Dates: start: 20221202, end: 20230113
  2. INFLIXIMAB-DYYB [Suspect]
     Active Substance: INFLIXIMAB-DYYB
     Dosage: 400MG INTRAVENOUS INFUSIONS AT 8 WEEKLY INTERVALS.
     Route: 042
     Dates: start: 20230908
  3. INFLIXIMAB-DYYB [Suspect]
     Active Substance: INFLIXIMAB-DYYB
     Dosage: 400MG INTRAVENOUS INFUSIONS AT 8 WEEKLY INTERVALS.
     Route: 042
     Dates: start: 20231102
  4. INFLIXIMAB-DYYB [Suspect]
     Active Substance: INFLIXIMAB-DYYB
     Dosage: 400MG INTRAVENOUS INFUSIONS AT 8 WEEKLY INTERVALS.
     Route: 042
     Dates: start: 20231221
  5. INFLIXIMAB-DYYB [Suspect]
     Active Substance: INFLIXIMAB-DYYB
     Dosage: UNK400MG INTRAVENOUS INFUSIONS AT 8 WEEKLY INTERVALS.
     Route: 042
     Dates: start: 20240215
  6. METHOTREXATE [Concomitant]
     Active Substance: METHOTREXATE
     Indication: Ankylosing spondylitis
     Dosage: 10 MILLIGRAM, QD
  7. LEFLUNOMIDE [Concomitant]
     Active Substance: LEFLUNOMIDE
     Indication: Ankylosing spondylitis
     Dosage: 20 MILLIGRAM

REACTIONS (14)
  - Condition aggravated [Unknown]
  - Back injury [Recovering/Resolving]
  - Fall [Recovering/Resolving]
  - COVID-19 [Recovering/Resolving]
  - Post-acute COVID-19 syndrome [Unknown]
  - Pain [Recovered/Resolved]
  - Fatigue [Recovering/Resolving]
  - Mouth ulceration [Recovering/Resolving]
  - Cough [Recovering/Resolving]
  - Dizziness [Recovering/Resolving]
  - Herpes zoster [Recovered/Resolved]
  - Loss of personal independence in daily activities [Unknown]
  - Intentional dose omission [Unknown]
  - Therapy change [Unknown]

NARRATIVE: CASE EVENT DATE: 20221202
